FAERS Safety Report 20531664 (Version 1)
Quarter: 2022Q1

REPORT INFORMATION
  Report Type: Report from Study
  Country: US (occurrence: US)
  Receive Date: 20220301
  Receipt Date: 20220301
  Transmission Date: 20220423
  Serious: Yes (Hospitalization)
  Sender: FDA-Public Use
  Company Number: US-CELGENE-USA-20220206957

PATIENT
  Sex: Male
  Weight: 122.58 kg

DRUGS (1)
  1. REVLIMID [Suspect]
     Active Substance: LENALIDOMIDE
     Indication: Langerhans^ cell histiocytosis
     Dosage: 10 MILLIGRAM
     Route: 048
     Dates: start: 202105

REACTIONS (1)
  - COVID-19 [Unknown]
